FAERS Safety Report 7222015-0 (Version None)
Quarter: 2011Q1

REPORT INFORMATION
  Report Type: 
  Country: None (occurrence: None)
  Receive Date: 20110112
  Receipt Date: 20110103
  Transmission Date: 20110831
  Serious: Yes (Life-Threatening)
  Sender: FDA-Public Use
  Company Number: US-ELI_LILLY_AND_COMPANY-US201010005308

PATIENT
  Age: 76 Year
  Sex: Male
  Weight: 66.213 kg

DRUGS (7)
  1. NIASPAN [Concomitant]
  2. EFFIENT [Suspect]
     Indication: ANGINA PECTORIS
     Dosage: 10 MG, DAILY (1/D)
     Route: 048
     Dates: start: 20091115, end: 20100126
  3. CRESTOR [Concomitant]
  4. OMACOR [Concomitant]
  5. NITROGLYCERIN [Concomitant]
     Route: 062
  6. CO Q10 [Concomitant]
  7. PROTONIX [Concomitant]

REACTIONS (5)
  - EPISTAXIS [None]
  - GINGIVAL BLEEDING [None]
  - EAR HAEMORRHAGE [None]
  - FAECES DISCOLOURED [None]
  - ARTHRALGIA [None]
